FAERS Safety Report 5732597-3 (Version None)
Quarter: 2008Q2

REPORT INFORMATION
  Report Type: 
  Country: None (occurrence: None)
  Receive Date: 20080507
  Receipt Date: 20080424
  Transmission Date: 20081010
  Serious: Yes (Other)
  Sender: FDA-Public Use
  Company Number: 2008B1011010

PATIENT
  Sex: Female
  Weight: 78.0187 kg

DRUGS (5)
  1. TYSABRI [Suspect]
     Indication: MULTIPLE SCLEROSIS
     Dosage: 300 MG; QM; IV
     Route: 042
     Dates: start: 20050101, end: 20050101
  2. AVONEX [Concomitant]
  3. AVONEX [Concomitant]
  4. AVONEX [Concomitant]
  5. AVONEX [Concomitant]

REACTIONS (3)
  - DISEASE PROGRESSION [None]
  - MALIGNANT MELANOMA [None]
  - MULTIPLE SCLEROSIS RELAPSE [None]
